FAERS Safety Report 8236341-X (Version None)
Quarter: 2012Q1

REPORT INFORMATION
  Report Type: 
  Country: None (occurrence: None)
  Receive Date: 20120327
  Receipt Date: 20120315
  Transmission Date: 20120608
  Serious: No
  Sender: FDA-Public Use
  Company Number: US-JNJFOC-20120310152

PATIENT
  Sex: Male
  Weight: 81.65 kg

DRUGS (3)
  1. RISPERIDONE [Concomitant]
     Indication: SCHIZOAFFECTIVE DISORDER
     Route: 048
     Dates: end: 20110801
  2. INVEGA SUSTENNA [Suspect]
     Indication: SCHIZOAFFECTIVE DISORDER
     Route: 030
     Dates: start: 20110801
  3. ANTIPSYCHOTIC MEDICATION [Concomitant]
     Indication: SCHIZOAFFECTIVE DISORDER
     Route: 048
     Dates: end: 20110801

REACTIONS (1)
  - INJECTION SITE PAIN [None]
